FAERS Safety Report 4545857-9 (Version None)
Quarter: 2005Q1

REPORT INFORMATION
  Report Type: 
  Country: None (occurrence: None)
  Receive Date: 20050104
  Receipt Date: 20050104
  Transmission Date: 20050727
  Serious: Yes (Hospitalization)
  Sender: FDA-Public Use
  Company Number: None

PATIENT
  Age: 74 Year
  Sex: Female
  Weight: 64 kg

DRUGS (11)
  1. ENBREL [Suspect]
     Indication: RHEUMATOID ARTHRITIS
     Dosage: 25 MG BIW SQ
     Route: 058
  2. ESTRACE [Concomitant]
  3. IRON [Concomitant]
  4. FOLIC ACID [Concomitant]
  5. PERCOCET [Concomitant]
  6. COUMADIN [Concomitant]
  7. ATENOLOL [Concomitant]
  8. LISINOPRIL [Concomitant]
  9. AMIODARONE HCL [Concomitant]
  10. HCTL [Concomitant]
  11. OSCAL [Concomitant]

REACTIONS (6)
  - ACID FAST STAIN POSITIVE [None]
  - COUGH [None]
  - LUNG DISORDER [None]
  - LUNG INFILTRATION [None]
  - LYMPHADENOPATHY [None]
  - WEIGHT DECREASED [None]
